FAERS Safety Report 8028133-1 (Version None)
Quarter: 2011Q4

REPORT INFORMATION
  Report Type: 
  Country: None (occurrence: None)
  Receive Date: 20111130
  Receipt Date: 20110622
  Transmission Date: 20120403
  Serious: Yes (Hospitalization, Other)
  Sender: FDA-Public Use
  Company Number: US200908005989

PATIENT
  Age: 53 Year
  Sex: Male
  Weight: 77.1 kg

DRUGS (27)
  1. MULTIVITAMIN [Concomitant]
  2. TOPAMAX (TOPIIRAMATE) [Concomitant]
  3. CYMBALTA [Concomitant]
  4. MIRTAZAPINE [Concomitant]
  5. CYTOMEL [Concomitant]
  6. ASPIRIN [Concomitant]
  7. ANDROGEL (TESTOSTERONE), 1 % [Concomitant]
  8. ALTACE [Concomitant]
  9. ACTOS /AUS/ (PIOGLITAZONE HYDROCHLORIDE) [Concomitant]
  10. FOLIC ACID [Concomitant]
  11. PROVIGIL [Concomitant]
  12. OXYCODONE AND ACETAMINOPHEN [Concomitant]
  13. SIMVASTATIN [Concomitant]
  14. DOXYCYCLINE [Concomitant]
  15. EXENATIDE 10MCG PEN, DISPOSABLE DEVICE (EXENATIDE PEN (10MCG)) PEN,DIS [Concomitant]
  16. CITALOPRAM HYDROBROMIDE [Concomitant]
  17. CLINDAMYCIN [Concomitant]
  18. BYETTA [Suspect]
     Dosage: 5 UG ; 10 UG, 2/D
     Dates: start: 20060301, end: 20071101
  19. BYETTA [Suspect]
     Dosage: 5 UG ; 10 UG, 2/D
     Dates: start: 20060201, end: 20060301
  20. LISINOPRIL [Concomitant]
  21. METFORMIN HCL [Concomitant]
  22. DEXEDRINE (DEXAMFETAMINE) [Concomitant]
  23. PRANDIN (DEFLAZACORT) [Concomitant]
  24. GABAPENTIN [Concomitant]
  25. DURAGESIC-100 [Concomitant]
  26. LEVOXYL [Concomitant]
  27. VITAMIN B12 [Concomitant]

REACTIONS (2)
  - WEIGHT DECREASED [None]
  - PANCREATITIS ACUTE [None]
